FAERS Safety Report 5409438-7 (Version None)
Quarter: 2007Q3

REPORT INFORMATION
  Report Type: 
  Country: None (occurrence: None)
  Receive Date: 20070807
  Receipt Date: 20070807
  Transmission Date: 20080115
  Serious: Yes (Hospitalization)
  Sender: FDA-Public Use
  Company Number: None

PATIENT
  Age: 51 Year
  Sex: Female
  Weight: 88.4514 kg

DRUGS (2)
  1. ALLI [Suspect]
     Indication: WEIGHT CONTROL
     Dosage: 1 WITH MEALS CONTAINING 15GRAM 3 X DAILY WITH MEA PO
     Route: 048
     Dates: start: 20070708, end: 20070804
  2. XENICAL [Concomitant]

REACTIONS (1)
  - PANCREATITIS [None]
